FAERS Safety Report 25210460 (Version 1)
Quarter: 2025Q2

REPORT INFORMATION
  Report Type: Spontaneous
  Country: US (occurrence: US)
  Receive Date: 20250417
  Receipt Date: 20250417
  Transmission Date: 20250717
  Serious: Yes (Hospitalization, Other)
  Sender: SANOFI AVENTIS
  Company Number: US-SA-2025SA107867

PATIENT
  Age: 50 Year
  Sex: Female
  Weight: 62.1 kg

DRUGS (46)
  1. REZUROCK [Suspect]
     Active Substance: BELUMOSUDIL
     Indication: Graft versus host disease in eye
     Dates: start: 202407
  2. REZUROCK [Suspect]
     Active Substance: BELUMOSUDIL
     Indication: Graft versus host disease in lung
  3. REZUROCK [Suspect]
     Active Substance: BELUMOSUDIL
     Indication: Graft versus host disease oral
  4. REZUROCK [Suspect]
     Active Substance: BELUMOSUDIL
     Indication: Graft versus host disease in skin
  5. JAKAFI [Suspect]
     Active Substance: RUXOLITINIB
     Indication: Chronic graft versus host disease in eye
     Dates: start: 20220112
  6. JAKAFI [Suspect]
     Active Substance: RUXOLITINIB
     Indication: Chronic graft versus host disease oral
  7. JAKAFI [Suspect]
     Active Substance: RUXOLITINIB
     Indication: Chronic graft versus host disease in lung
  8. JAKAFI [Suspect]
     Active Substance: RUXOLITINIB
     Indication: Chronic graft versus host disease in skin
  9. IBRUTINIB [Suspect]
     Active Substance: IBRUTINIB
     Indication: Chronic graft versus host disease in eye
     Dates: start: 202402
  10. IBRUTINIB [Suspect]
     Active Substance: IBRUTINIB
     Indication: Chronic graft versus host disease oral
  11. IBRUTINIB [Suspect]
     Active Substance: IBRUTINIB
     Indication: Chronic graft versus host disease in lung
  12. IBRUTINIB [Suspect]
     Active Substance: IBRUTINIB
     Indication: Chronic graft versus host disease in skin
  13. AXATILIMAB [Concomitant]
     Active Substance: AXATILIMAB
     Dates: start: 20240614, end: 20250130
  14. RITUXAN [Concomitant]
     Active Substance: RITUXIMAB
     Dates: start: 20231206
  15. BUDESONIDE [Concomitant]
     Active Substance: BUDESONIDE
     Dates: start: 20250313
  16. SINGULAIR [Concomitant]
     Active Substance: MONTELUKAST SODIUM
  17. SYMBICORT [Concomitant]
     Active Substance: BUDESONIDE\FORMOTEROL FUMARATE DIHYDRATE
  18. TYLENOL [Concomitant]
     Active Substance: ACETAMINOPHEN
  19. ZOVIRAX [Concomitant]
     Active Substance: ACYCLOVIR
  20. PROAIR HFA [Concomitant]
     Active Substance: ALBUTEROL SULFATE
  21. Artificial tears [Concomitant]
  22. TEMOVATE [Concomitant]
     Active Substance: CLOBETASOL PROPIONATE
  23. CATAPRES [Concomitant]
     Active Substance: CLONIDINE HYDROCHLORIDE
  24. RESTASIS [Concomitant]
     Active Substance: CYCLOSPORINE
  25. ERYTHROMYCIN [Concomitant]
     Active Substance: ERYTHROMYCIN
  26. FERROUS SULFATE [Concomitant]
     Active Substance: FERROUS SULFATE
  27. FLONASE ALLERGY RELIEF [Concomitant]
     Active Substance: FLUTICASONE PROPIONATE
  28. NEURONTIN [Concomitant]
     Active Substance: GABAPENTIN
  29. HALDOL [Concomitant]
     Active Substance: HALOPERIDOL
  30. CORTIZONE 10 [HYDROCORTISONE] [Concomitant]
  31. JARDIANCE [Concomitant]
     Active Substance: EMPAGLIFLOZIN
  32. SYNTHROID [Concomitant]
     Active Substance: LEVOTHYROXINE SODIUM
  33. LIDODERM [Concomitant]
     Active Substance: LIDOCAINE
  34. NAPROSYN [Concomitant]
     Active Substance: NAPROXEN
  35. INVEGA SUSTENNA [Concomitant]
     Active Substance: PALIPERIDONE PALMITATE
  36. PROTONIX [Concomitant]
     Active Substance: PANTOPRAZOLE SODIUM
  37. NOXAFIL [Concomitant]
     Active Substance: POSACONAZOLE
  38. PREDNISOLONE [Concomitant]
     Active Substance: PREDNISOLONE
  39. CRESTOR [Concomitant]
     Active Substance: ROSUVASTATIN CALCIUM
  40. BACTRIM DS [Concomitant]
     Active Substance: SULFAMETHOXAZOLE\TRIMETHOPRIM
  41. DESYREL [Concomitant]
     Active Substance: TRAZODONE HYDROCHLORIDE
  42. VIIBRYD [Concomitant]
     Active Substance: VILAZODONE HYDROCHLORIDE
  43. KAPVAY [Concomitant]
     Active Substance: CLONIDINE HYDROCHLORIDE
  44. PETROLATUM [Concomitant]
     Active Substance: PETROLATUM
  45. ZOSYN [Concomitant]
     Active Substance: PIPERACILLIN SODIUM\TAZOBACTAM SODIUM
  46. SODIUM CHLORIDE [Concomitant]
     Active Substance: SODIUM CHLORIDE

REACTIONS (25)
  - Type 2 diabetes mellitus [Unknown]
  - Schizophrenia [Unknown]
  - Abdominal pain [Recovered/Resolved]
  - Red cell distribution width increased [Unknown]
  - Platelet count increased [Unknown]
  - Monocyte count increased [Unknown]
  - Blood sodium decreased [Unknown]
  - Blood glucose increased [Unknown]
  - Blood urea decreased [Unknown]
  - Emphysema [Unknown]
  - Hepatomegaly [Not Recovered/Not Resolved]
  - Urethral disorder [Not Recovered/Not Resolved]
  - Pain [Unknown]
  - Anxiety [Unknown]
  - Vitamin D decreased [Unknown]
  - Gastrointestinal disorder [Unknown]
  - Nasal congestion [Unknown]
  - Leukocytosis [Unknown]
  - Blood alkaline phosphatase increased [Unknown]
  - Viral infection [Unknown]
  - Nausea [Unknown]
  - Diarrhoea [Unknown]
  - Cough [Unknown]
  - Vomiting [Unknown]
  - Drug ineffective [Unknown]

NARRATIVE: CASE EVENT DATE: 20250130
